FAERS Safety Report 9920115 (Version 1)
Quarter: 2014Q1

REPORT INFORMATION
  Report Type: Spontaneous
  Country: DK (occurrence: DE)
  Receive Date: 20140224
  Receipt Date: 20140224
  Transmission Date: 20141002
  Serious: Yes (Congenital Anomaly, Other)
  Sender: FDA-Public Use
  Company Number: DE-FRI-1000054501

PATIENT
  Age: 0 None
  Sex: Male
  Weight: 2.8 kg

DRUGS (5)
  1. CITALOPRAM [Suspect]
     Indication: PANIC ATTACK
     Dosage: 20 MG
     Route: 064
     Dates: start: 20111126
  2. AMITRIPTYLINE [Suspect]
     Indication: BORDERLINE PERSONALITY DISORDER
     Route: 064
  3. LYRICA [Suspect]
     Indication: PSYCHOGENIC PAIN DISORDER
     Dosage: 150 MG
     Route: 064
     Dates: start: 20111226, end: 20120927
  4. DOMINAL FORTE [Suspect]
     Indication: PANIC ATTACK
     Dosage: 160 MG
     Route: 064
     Dates: start: 20111226, end: 20120927
  5. TAVOR [Suspect]
     Indication: PANIC ATTACK
     Dosage: 2 MG
     Route: 064
     Dates: start: 20111226, end: 20120927

REACTIONS (5)
  - Pulmonary artery stenosis congenital [Unknown]
  - Agitation neonatal [Recovered/Resolved]
  - Small for dates baby [Unknown]
  - Restlessness [Unknown]
  - Foetal exposure during pregnancy [Unknown]
